FAERS Safety Report 9684369 (Version 3)
Quarter: 2014Q1

REPORT INFORMATION
  Report Type: Spontaneous
  Country: US (occurrence: US)
  Receive Date: 20131112
  Receipt Date: 20140108
  Transmission Date: 20141002
  Serious: Yes (Life-Threatening)
  Sender: FDA-Public Use
  Company Number: US-009507513-1311USA002123

PATIENT
  Age: 44 Year
  Sex: Female
  Weight: 62.59 kg

DRUGS (7)
  1. JANUMET [Suspect]
     Indication: DIABETES MELLITUS
     Dosage: UNK
     Route: 048
     Dates: start: 20131108, end: 20131119
  2. METFORMIN [Concomitant]
  3. PRINIVIL [Concomitant]
     Dosage: UNK
     Route: 048
  4. HYDROCHLOROTHIAZIDE [Concomitant]
     Dosage: UNK
     Route: 048
  5. ZOCOR [Concomitant]
     Dosage: UNK
     Route: 048
  6. IBUPROFEN [Concomitant]
     Dosage: 800
     Route: 048
  7. GROFIBRAT [Concomitant]
     Dosage: UNK
     Route: 048

REACTIONS (10)
  - Vertigo [Recovered/Resolved]
  - Lethargy [Recovered/Resolved]
  - Fatigue [Recovered/Resolved]
  - Dizziness [Recovered/Resolved]
  - Dysstasia [Recovering/Resolving]
  - Motion sickness [Recovering/Resolving]
  - Movement disorder [Recovering/Resolving]
  - Hypokinesia [Recovering/Resolving]
  - Drug dose omission [Unknown]
  - Sedation [Unknown]
